FAERS Safety Report 7601370 (Version 3)
Quarter: 2013Q4

REPORT INFORMATION
  Report Type: Spontaneous
  Country: GB (occurrence: None)
  Receive Date: 20100909
  Receipt Date: 20131119
  Transmission Date: 20140711
  Serious: Yes (Hospitalization, Other)
  Sender: FDA-Public Use
  Company Number: 20100424

PATIENT
  Age: 65 Year
  Sex: Male

DRUGS (13)
  1. METHYLENE BLUE [Suspect]
     Indication: SCAN WITH CONTRAST
     Dosage: 650 MG IN 500 ML ; NS(7.5 MG/KG) INTRAVENOUS DRI P
     Route: 041
  2. METHYLENE BLUE [Suspect]
     Indication: PARATHYROID DISORDER
     Dosage: 650 MG IN 500 ML ; NS(7.5 MG/KG) INTRAVENOUS DRI P
     Route: 041
  3. ALFACALCIDOL [Concomitant]
  4. ALUMINIUM [Concomitant]
  5. ATORVASTATIN [Concomitant]
  6. CITALOPRAM [Concomitant]
  7. CLOPIDOGREL [Concomitant]
  8. OMEPRAZOLE [Concomitant]
  9. QUININE SULFATE [Concomitant]
  10. SILDENAFIL [Concomitant]
  11. SULPHATE [Concomitant]
  12. INSULIN [Concomitant]
  13. HYDROXIDE [Concomitant]

REACTIONS (19)
  - Hyperthermia malignant [None]
  - Haemodialysis [None]
  - Cardiac output decreased [None]
  - Bundle branch block left [None]
  - Toxicity to various agents [None]
  - Confusion postoperative [None]
  - Emotional distress [None]
  - Vomiting [None]
  - Oxygen saturation decreased [None]
  - Delayed recovery from anaesthesia [None]
  - Agitation [None]
  - Depressed level of consciousness [None]
  - Chills [None]
  - Hyperhidrosis [None]
  - Lactic acidosis [None]
  - Blood potassium increased [None]
  - Sinus tachycardia [None]
  - Extrasystoles [None]
  - Electrocardiogram ST segment depression [None]
